FAERS Safety Report 9410169 (Version 1)
Quarter: 2013Q3

REPORT INFORMATION
  Report Type: Spontaneous
  Country: US (occurrence: US)
  Receive Date: 20130719
  Receipt Date: 20130719
  Transmission Date: 20140515
  Serious: Yes (Hospitalization)
  Sender: FDA-Public Use
  Company Number: US-ASTRAZENECA-2013SE52997

PATIENT
  Age: 61 Year
  Sex: Male

DRUGS (17)
  1. ATENOLOL [Suspect]
     Route: 048
  2. ASA [Suspect]
     Route: 065
  3. NIFEDIPINE [Suspect]
     Route: 065
  4. ISOSORBIDE MONONITRATE [Suspect]
     Route: 065
  5. LISINOPRIL [Suspect]
     Route: 065
  6. FUROSEMIDE [Suspect]
     Route: 065
  7. SPIRONOLACTONE AND HYDROCHLOROTHIAZIDE [Suspect]
     Route: 065
  8. SAXAGLIPTIN [Suspect]
     Indication: TYPE 2 DIABETES MELLITUS
     Route: 048
     Dates: start: 20101220, end: 20111114
  9. SAXAGLIPTIN [Suspect]
     Indication: TYPE 2 DIABETES MELLITUS
     Route: 048
     Dates: start: 20111205
  10. INSULIN ASPART [Suspect]
     Indication: TYPE 2 DIABETES MELLITUS
     Route: 065
     Dates: end: 20110311
  11. INSULIN ASPART [Suspect]
     Indication: TYPE 2 DIABETES MELLITUS
     Route: 065
     Dates: start: 20110311, end: 20110603
  12. INSULIN ASPART [Suspect]
     Indication: TYPE 2 DIABETES MELLITUS
     Route: 065
     Dates: start: 20110603
  13. INSULIN GLARGINE [Suspect]
     Indication: TYPE 2 DIABETES MELLITUS
     Route: 065
     Dates: start: 20110811, end: 20111121
  14. INSULIN GLARGINE [Suspect]
     Indication: TYPE 2 DIABETES MELLITUS
     Route: 065
     Dates: start: 20111121, end: 20120516
  15. INSULIN GLARGINE [Suspect]
     Indication: TYPE 2 DIABETES MELLITUS
     Route: 065
     Dates: start: 20120516
  16. ASPIRIN [Concomitant]
  17. NIACIN [Concomitant]

REACTIONS (2)
  - Renal failure acute [Recovered/Resolved]
  - Hypotension [Recovered/Resolved]
